FAERS Safety Report 7110609-2 (Version None)
Quarter: 2010Q4

REPORT INFORMATION
  Report Type: 
  Country: None (occurrence: None)
  Receive Date: 20101118
  Receipt Date: 20101109
  Transmission Date: 20110411
  Serious: Yes (Hospitalization)
  Sender: FDA-Public Use
  Company Number: JP-B.I. PHARMACEUTICALS,INC./RIDGEFIELD-2010-BP-10528NB

PATIENT
  Sex: Female
  Weight: 50 kg

DRUGS (13)
  1. BI-SIFROL TABLETS [Suspect]
     Indication: PARKINSON'S DISEASE
     Dosage: 3 MG
     Route: 048
     Dates: start: 20070215, end: 20100902
  2. COMTAN [Suspect]
     Indication: PARKINSON'S DISEASE
     Dosage: 600 MG
     Route: 048
     Dates: start: 20070705, end: 20100917
  3. NORVASC [Suspect]
     Indication: HYPERTENSION
     Dosage: 2.5 MG
     Route: 048
     Dates: start: 20060307, end: 20100917
  4. FAMOTIDINE [Suspect]
     Indication: ABDOMINAL DISCOMFORT
     Dosage: 20 MG
     Route: 048
     Dates: start: 20090310, end: 20100917
  5. MENESIT [Concomitant]
     Indication: PARKINSON'S DISEASE
     Dosage: 300 MG
     Route: 048
     Dates: start: 20060307
  6. MUCOSTA [Concomitant]
     Indication: ABDOMINAL DISCOMFORT
     Dosage: 300 MG
     Route: 048
     Dates: start: 20060307, end: 20100917
  7. SELEGILINE HCL [Concomitant]
     Indication: PARKINSON'S DISEASE
     Dosage: 100 MG
     Route: 048
     Dates: start: 20060307, end: 20100921
  8. MAGNESIUM OXIDE [Concomitant]
     Indication: CONSTIPATION
     Dosage: 2 G
     Route: 048
     Dates: start: 20090226
  9. VESICARE [Concomitant]
     Indication: NEUROGENIC BLADDER
     Dosage: 5 MG
     Route: 048
     Dates: start: 20090108
  10. LIPITOR [Concomitant]
     Indication: HYPERLIPIDAEMIA
     Dosage: 5 MG
     Route: 048
     Dates: start: 20060307
  11. EVISTA [Concomitant]
     Indication: OSTEOPOROSIS
     Dosage: 60 MG
     Route: 048
     Dates: start: 20060310
  12. ALINAMIN-F [Concomitant]
     Indication: MYALGIA
     Dosage: 25 MG
     Route: 048
     Dates: start: 20060307
  13. LOXONIN [Concomitant]
     Indication: MYALGIA
     Dosage: 120 MG
     Route: 048
     Dates: start: 20090127

REACTIONS (4)
  - DYSKINESIA [None]
  - DYSPHAGIA [None]
  - MASTICATION DISORDER [None]
  - POSTURE ABNORMAL [None]
